FAERS Safety Report 25762386 (Version 1)
Quarter: 2025Q3

REPORT INFORMATION
  Report Type: Spontaneous
  Country: US (occurrence: US)
  Receive Date: 20250904
  Receipt Date: 20250904
  Transmission Date: 20251020
  Serious: No
  Sender: ELI LILLY AND COMPANY
  Company Number: US-ELI_LILLY_AND_COMPANY-US202507001595

PATIENT
  Age: 84 Year
  Sex: Male

DRUGS (17)
  1. BASAGLAR [Suspect]
     Active Substance: INSULIN GLARGINE
     Indication: Diabetes mellitus
     Dosage: 8 MG, DAILY
     Route: 065
     Dates: start: 20220603
  2. BASAGLAR [Suspect]
     Active Substance: INSULIN GLARGINE
     Indication: Diabetes mellitus
     Dosage: 8 MG, DAILY
     Route: 065
     Dates: start: 20220603
  3. BASAGLAR [Suspect]
     Active Substance: INSULIN GLARGINE
     Indication: Diabetes mellitus
     Dosage: 8 MG, DAILY
     Route: 065
     Dates: start: 20220603
  4. BASAGLAR [Suspect]
     Active Substance: INSULIN GLARGINE
     Dosage: 8 MG, DAILY
     Route: 065
     Dates: start: 20220603
  5. BASAGLAR [Suspect]
     Active Substance: INSULIN GLARGINE
     Dosage: 8 MG, DAILY
     Route: 065
     Dates: start: 20220603
  6. BASAGLAR [Suspect]
     Active Substance: INSULIN GLARGINE
     Route: 065
  7. BASAGLAR [Suspect]
     Active Substance: INSULIN GLARGINE
     Route: 065
  8. BASAGLAR [Suspect]
     Active Substance: INSULIN GLARGINE
     Route: 065
  9. BASAGLAR [Suspect]
     Active Substance: INSULIN GLARGINE
     Route: 065
  10. BASAGLAR [Suspect]
     Active Substance: INSULIN GLARGINE
     Route: 065
  11. BASAGLAR [Suspect]
     Active Substance: INSULIN GLARGINE
     Route: 065
  12. BASAGLAR [Suspect]
     Active Substance: INSULIN GLARGINE
     Route: 065
  13. LOSARTAN [Concomitant]
     Active Substance: LOSARTAN
     Indication: Product used for unknown indication
  14. RIVASTIGMINE [Concomitant]
     Active Substance: RIVASTIGMINE
     Indication: Dementia
  15. MEMANTINE [Concomitant]
     Active Substance: MEMANTINE
     Indication: Glomerulonephritis minimal lesion
  16. ELIQUIS [Concomitant]
     Active Substance: APIXABAN
     Indication: Atrial fibrillation
     Dates: start: 202407
  17. ATORVASTATIN [Concomitant]
     Active Substance: ATORVASTATIN
     Indication: Blood cholesterol
     Dates: start: 2023

REACTIONS (2)
  - Product dose omission issue [Unknown]
  - Incorrect dose administered [Unknown]

NARRATIVE: CASE EVENT DATE: 20250621
